FAERS Safety Report 5091409-4 (Version None)
Quarter: 2006Q3

REPORT INFORMATION
  Report Type: 
  Country: None (occurrence: None)
  Receive Date: 20060727
  Receipt Date: 20060413
  Transmission Date: 20061208
  Serious: Yes (Other)
  Sender: FDA-Public Use
  Company Number: 2006051379

PATIENT
  Age: 61 Year
  Sex: Male
  Weight: 98.8842 kg

DRUGS (10)
  1. LYRICA [Suspect]
     Indication: DIABETIC NEUROPATHY
     Dosage: 50 MG (50 MG,1 IN 1 D),ORAL
     Route: 048
     Dates: start: 20060412
  2. LYRICA [Suspect]
     Indication: SCIATICA
     Dosage: 50 MG (50 MG,1 IN 1 D),ORAL
     Route: 048
     Dates: start: 20060412
  3. METHADONE HCL [Concomitant]
  4. TRICOR [Concomitant]
  5. CRESTOR [Concomitant]
  6. NOVOLOG [Concomitant]
  7. NOVOLIN N [Concomitant]
  8. NIACIN [Concomitant]
  9. ASPIRIN [Concomitant]
  10. IBUPROFEN [Concomitant]

REACTIONS (2)
  - PRURITUS [None]
  - RASH [None]
